FAERS Safety Report 10281592 (Version 1)
Quarter: 2014Q3

REPORT INFORMATION
  Report Type: Spontaneous
  Country: FR (occurrence: FR)
  Receive Date: 20140707
  Receipt Date: 20140707
  Transmission Date: 20150326
  Serious: Yes (Disabling)
  Sender: FDA-Public Use
  Company Number: FR-AMGEN-FRASP2014049809

PATIENT
  Age: 81 Year
  Sex: Female

DRUGS (7)
  1. AVASTIN [Concomitant]
     Active Substance: BEVACIZUMAB
     Dosage: UNK
     Dates: start: 20140519
  2. ELOXATIN [Concomitant]
     Active Substance: OXALIPLATIN
     Indication: COLON CANCER
     Dosage: 5 MG/ML, 6.0714 MG DAILY (85 MG, 1 IN 2 WEEKS)
     Route: 042
     Dates: start: 20130914, end: 20140317
  3. SYMBICORT [Concomitant]
     Active Substance: BUDESONIDE\FORMOTEROL FUMARATE DIHYDRATE
     Indication: ASTHMA
     Dosage: LONG TERM TREATMENT
     Route: 055
  4. FLUOROURACILE [Concomitant]
     Active Substance: FLUOROURACIL
     Indication: COLON CANCER
     Dosage: UNK
     Route: 042
     Dates: start: 20130914, end: 20140317
  5. VECTIBIX [Suspect]
     Active Substance: PANITUMUMAB
     Indication: COLON CANCER
     Dosage: 320 MG, (22.8571 MG) 1 IN 2 WEEKS
     Route: 042
     Dates: start: 20131014, end: 20140317
  6. FOLINIC ACID [Concomitant]
     Active Substance: LEUCOVORIN
     Indication: COLON CANCER
     Dosage: 20.7143 MG (290 MG) 1 IN 2 WEEKS
     Route: 042
     Dates: start: 20130914, end: 20140317
  7. XELODA [Concomitant]
     Active Substance: CAPECITABINE
     Dosage: UNK
     Dates: start: 20140519

REACTIONS (1)
  - Hypoacusis [Not Recovered/Not Resolved]

NARRATIVE: CASE EVENT DATE: 201402
